FAERS Safety Report 7994343-2 (Version None)
Quarter: 2011Q4

REPORT INFORMATION
  Report Type: 
  Country: None (occurrence: None)
  Receive Date: 20111220
  Receipt Date: 20110331
  Transmission Date: 20120403
  Serious: Yes (Other)
  Sender: FDA-Public Use
  Company Number: US-GLAXOSMITHKLINE-A0920879A

PATIENT
  Age: 48 Year
  Sex: Female

DRUGS (11)
  1. WELLBUTRIN [Concomitant]
  2. VITAMIN E [Concomitant]
  3. VITAMIN B-12 [Concomitant]
  4. SINGULAIR [Concomitant]
  5. TACLONEX [Concomitant]
  6. DAILY VITAMIN [Concomitant]
  7. ESTRADIOL [Concomitant]
  8. SORIATANE [Suspect]
     Indication: PSORIASIS
     Dosage: 25MG PER DAY
     Route: 048
     Dates: start: 20110329
  9. ALLEGRA [Concomitant]
  10. VITAMIN D [Concomitant]
  11. PREDNISONE [Concomitant]

REACTIONS (7)
  - DRY SKIN [None]
  - HEADACHE [None]
  - PSORIASIS [None]
  - ACNE [None]
  - SKIN CHAPPED [None]
  - PRURITUS [None]
  - ERYTHEMA [None]
